FAERS Safety Report 11748618 (Version 3)
Quarter: 2015Q4

REPORT INFORMATION
  Report Type: Spontaneous
  Country: JP (occurrence: JP)
  Receive Date: 20151117
  Receipt Date: 20151209
  Transmission Date: 20160304
  Serious: Yes (Life-Threatening, Disabling, Other)
  Sender: FDA-Public Use
  Company Number: JP-ROCHE-1662089

PATIENT
  Age: 63 Year
  Sex: Male
  Weight: 58 kg

DRUGS (25)
  1. LEVOFOLINATE [Concomitant]
     Active Substance: LEVOLEUCOVORIN CALCIUM
     Indication: RECTAL CANCER
     Dosage: DOSAGE UNCERTAIN.
     Route: 041
     Dates: start: 20120322, end: 20141016
  2. HARNAL [Concomitant]
     Active Substance: TAMSULOSIN HYDROCHLORIDE
     Route: 048
     Dates: start: 20150820
  3. MARZULENE-S [Concomitant]
     Active Substance: SODIUM GUALENATE
     Dosage: DOSE: 0.67 (UNIT UNSPECIFIED).
     Route: 048
     Dates: start: 20150820
  4. AVASTIN [Suspect]
     Active Substance: BEVACIZUMAB
     Indication: RECTAL CANCER
     Route: 041
     Dates: start: 20120322, end: 20141016
  5. ASTOMIN (JAPAN) [Concomitant]
     Dosage: DOSAGE UNCERTAIN.
     Route: 048
     Dates: start: 20150917
  6. PROMAC (JAPAN) [Concomitant]
     Route: 048
     Dates: start: 20150820
  7. RINDERON V [Concomitant]
     Active Substance: BETAMETHASONE VALERATE
     Dosage: .
     Route: 048
     Dates: start: 20150820
  8. CAMPTO [Concomitant]
     Active Substance: IRINOTECAN
     Route: 041
     Dates: start: 20150820, end: 20150917
  9. ALOXI [Concomitant]
     Active Substance: PALONOSETRON HYDROCHLORIDE
     Dosage: DOSAGE UNCERTAIN.
     Route: 065
     Dates: start: 20150917
  10. AVASTIN [Suspect]
     Active Substance: BEVACIZUMAB
     Route: 041
     Dates: start: 20141127, end: 20150701
  11. 5-FU [Concomitant]
     Active Substance: FLUOROURACIL
     Indication: RECTAL CANCER
     Route: 040
     Dates: start: 20120322, end: 20141016
  12. LEVOFOLINATE [Concomitant]
     Active Substance: LEVOLEUCOVORIN CALCIUM
     Indication: RECTAL CANCER
     Dosage: DOSAGE UNCERTAIN.
     Route: 041
     Dates: start: 20141127, end: 20150701
  13. EMEND [Concomitant]
     Active Substance: APREPITANT
     Dosage: DOSAGE UNCERTAIN.
     Route: 048
     Dates: start: 20150917, end: 20150919
  14. DECADRON [Concomitant]
     Active Substance: DEXAMETHASONE
     Dosage: DOSAGE UNCERTAIN.
     Route: 065
     Dates: start: 20150917, end: 20150919
  15. CARBOCISTEINE [Concomitant]
     Active Substance: CARBOCYSTEINE
     Route: 048
     Dates: start: 20150820
  16. 5-FU [Concomitant]
     Active Substance: FLUOROURACIL
     Indication: RECTAL CANCER
     Dosage: DOSAGE UNCERTAIN.
     Route: 041
     Dates: start: 20120322, end: 20141016
  17. FAMOTIDINE. [Concomitant]
     Active Substance: FAMOTIDINE
     Route: 048
     Dates: start: 20150820
  18. AVASTIN [Suspect]
     Active Substance: BEVACIZUMAB
     Route: 041
     Dates: start: 20150917
  19. AVASTIN [Suspect]
     Active Substance: BEVACIZUMAB
     Route: 041
     Dates: start: 20150820, end: 20150917
  20. TS-1 [Concomitant]
     Active Substance: GIMERACIL\OTERACIL\TEGAFUR
     Route: 048
     Dates: start: 20150917, end: 20151001
  21. ELPLAT [Concomitant]
     Active Substance: OXALIPLATIN
     Indication: RECTAL CANCER
     Dosage: DOSAGE UNCERTAIN.
     Route: 041
     Dates: start: 20141127, end: 20150701
  22. 5-FU [Concomitant]
     Active Substance: FLUOROURACIL
     Indication: RECTAL CANCER
     Dosage: DOSAGE UNCERTAIN.
     Route: 040
     Dates: start: 20141127, end: 20150701
  23. TS-1 [Concomitant]
     Active Substance: GIMERACIL\OTERACIL\TEGAFUR
     Indication: COLON CANCER
     Route: 048
     Dates: start: 20150820, end: 20150930
  24. CAMPTO [Concomitant]
     Active Substance: IRINOTECAN
     Indication: RECTAL CANCER
     Dosage: THE FRACTIONATION DOSE FREQUENCY IS UNCERTAIN. ?DOSE INTERVAL UNCERTAINTY
     Route: 041
     Dates: start: 20120322, end: 20141016
  25. 5-FU [Concomitant]
     Active Substance: FLUOROURACIL
     Indication: RECTAL CANCER
     Dosage: DOSAGE UNCERTAIN.
     Route: 041
     Dates: start: 20141127, end: 20150701

REACTIONS (4)
  - Eye movement disorder [Not Recovered/Not Resolved]
  - Visual acuity reduced [Not Recovered/Not Resolved]
  - VIth nerve disorder [Not Recovered/Not Resolved]
  - Pneumonia bacterial [Not Recovered/Not Resolved]

NARRATIVE: CASE EVENT DATE: 20151106
